FAERS Safety Report 5872003-1 (Version None)
Quarter: 2008Q3

REPORT INFORMATION
  Report Type: 
  Country: None (occurrence: None)
  Receive Date: 20080904
  Receipt Date: 20080904
  Transmission Date: 20090109
  Serious: Yes (Other)
  Sender: FDA-Public Use
  Company Number: None

PATIENT
  Age: 36 Year
  Sex: Female
  Weight: 74.3899 kg

DRUGS (1)
  1. QUASENSE [Suspect]
     Indication: CONTRACEPTION
     Dosage: 1 TABLET Q DAY PO
     Route: 048
     Dates: start: 20080701, end: 20080728

REACTIONS (7)
  - AFFECTIVE DISORDER [None]
  - BLOOD PRESSURE INCREASED [None]
  - FATIGUE [None]
  - FEELING ABNORMAL [None]
  - PHARMACEUTICAL PRODUCT COMPLAINT [None]
  - SINUSITIS [None]
  - STRESS [None]
